FAERS Safety Report 21782892 (Version 7)
Quarter: 2023Q2

REPORT INFORMATION
  Report Type: Report from Study
  Country: US (occurrence: US)
  Receive Date: 20221227
  Receipt Date: 20230510
  Transmission Date: 20230721
  Serious: Yes (Hospitalization, Other)
  Sender: FDA-Public Use
  Company Number: US-GILEAD-2022-0610294

PATIENT
  Age: 62 Year
  Sex: Female
  Weight: 111.57 kg

DRUGS (6)
  1. AMBRISENTAN [Suspect]
     Active Substance: AMBRISENTAN
     Indication: Pulmonary arterial hypertension
     Dosage: 5 MG, QD
     Route: 065
     Dates: start: 20221120
  2. SILDENAFIL CITRATE [Suspect]
     Active Substance: SILDENAFIL CITRATE
     Indication: Pulmonary arterial hypertension
     Dosage: 60 MG, TID
     Route: 048
     Dates: start: 20220628
  3. SILDENAFIL CITRATE [Suspect]
     Active Substance: SILDENAFIL CITRATE
     Dosage: 20 MG, TID
     Route: 065
     Dates: start: 202206
  4. TYVASO [Suspect]
     Active Substance: TREPROSTINIL
     Indication: Pulmonary arterial hypertension
     Dosage: 16 UG, QID
     Route: 065
     Dates: start: 202211, end: 20221218
  5. TYVASO [Suspect]
     Active Substance: TREPROSTINIL
     Dosage: 16 UG, QID
     Route: 065
     Dates: start: 202211
  6. TYVASO [Suspect]
     Active Substance: TREPROSTINIL
     Dosage: 64 MG, QID
     Route: 065
     Dates: start: 202211

REACTIONS (9)
  - Liver disorder [Not Recovered/Not Resolved]
  - Ammonia abnormal [Not Recovered/Not Resolved]
  - Pneumonia [Recovered/Resolved]
  - Dyspnoea [Recovered/Resolved]
  - Gastrointestinal disorder [Recovered/Resolved]
  - Pleural effusion [Recovered/Resolved]
  - Weight increased [Recovered/Resolved]
  - Fluid retention [Recovered/Resolved]
  - Drug ineffective [Not Recovered/Not Resolved]

NARRATIVE: CASE EVENT DATE: 20221201
